FAERS Safety Report 8379297-1 (Version None)
Quarter: 2012Q2

REPORT INFORMATION
  Report Type: 
  Country: None (occurrence: None)
  Receive Date: 20120523
  Receipt Date: 20120515
  Transmission Date: 20120825
  Serious: Yes (Other)
  Sender: FDA-Public Use
  Company Number: PHHY2012MX043006

PATIENT
  Sex: Male

DRUGS (3)
  1. TRILEPTAL [Suspect]
     Indication: EPILEPSY
     Dosage: 60 MG/ML, DAILY
     Dates: start: 20090601, end: 20100101
  2. ATEMPERATOR [Concomitant]
     Indication: EPILEPSY
     Dosage: UNK
     Dates: start: 20090601
  3. RISPERDAL [Concomitant]
     Indication: EPILEPSY

REACTIONS (2)
  - HEART ALTERNATION [None]
  - HEADACHE [None]
